FAERS Safety Report 5490950-X (Version None)
Quarter: 2007Q4

REPORT INFORMATION
  Report Type: 
  Country: None (occurrence: None)
  Receive Date: 20071019
  Receipt Date: 20071009
  Transmission Date: 20080405
  Serious: Yes (Other)
  Sender: FDA-Public Use
  Company Number: GB-PFIZER INC-2007085587

PATIENT
  Age: 17 Year
  Sex: Male

DRUGS (1)
  1. SERTRALINE [Suspect]

REACTIONS (2)
  - DRUG DEPENDENCE [None]
  - OBSESSIVE-COMPULSIVE DISORDER [None]
